FAERS Safety Report 8448585-2 (Version None)
Quarter: 2012Q2

REPORT INFORMATION
  Report Type: 
  Country: None (occurrence: None)
  Receive Date: 20120619
  Receipt Date: 20120613
  Transmission Date: 20120825
  Serious: Yes (Other)
  Sender: FDA-Public Use
  Company Number: NO-ROCHE-1078353

PATIENT
  Age: 2 Year
  Sex: Male

DRUGS (1)
  1. CLONAZEPAM [Suspect]
     Indication: PRODUCT USED FOR UNKNOWN INDICATION

REACTIONS (6)
  - DYSSTASIA [None]
  - POOR QUALITY SLEEP [None]
  - SPEECH DISORDER [None]
  - TESTICULAR DISORDER [None]
  - COORDINATION ABNORMAL [None]
  - SALIVARY HYPERSECRETION [None]
